FAERS Safety Report 21125530 (Version 2)
Quarter: 2022Q3

REPORT INFORMATION
  Report Type: Spontaneous
  Country: US (occurrence: US)
  Receive Date: 20220725
  Receipt Date: 20220809
  Transmission Date: 20221026
  Serious: Yes (Death)
  Sender: FDA-Public Use
  Company Number: US-PFIZER INC-2019547929

PATIENT
  Age: 91 Year
  Sex: Female

DRUGS (1)
  1. PREMARIN [Suspect]
     Active Substance: ESTROGENS, CONJUGATED
     Dosage: 0.9 MG, UNK

REACTIONS (2)
  - Death [Fatal]
  - Wrong strength [Unknown]

NARRATIVE: CASE EVENT DATE: 20220101
